FAERS Safety Report 11643905 (Version 1)
Quarter: 2015Q4

REPORT INFORMATION
  Report Type: Spontaneous
  Country: US (occurrence: US)
  Receive Date: 20151020
  Receipt Date: 20151020
  Transmission Date: 20160304
  Serious: No
  Sender: FDA-Public Use
  Company Number: US-HORIZON-PEN-0180-2015

PATIENT
  Age: 64 Year
  Sex: Female

DRUGS (5)
  1. PENNSAID [Suspect]
     Active Substance: DICLOFENAC SODIUM
     Indication: ARTHRALGIA
     Dosage: 1 PUMP TWICE DAILY
     Dates: start: 20150917
  2. TYLENOL [Concomitant]
     Active Substance: ACETAMINOPHEN
  3. LODINE [Concomitant]
     Active Substance: ETODOLAC
  4. CLAMARIA [Concomitant]
  5. SKELAXIN [Concomitant]
     Active Substance: METAXALONE

REACTIONS (2)
  - Off label use [Unknown]
  - Product packaging quantity issue [Unknown]
